FAERS Safety Report 7967716-1 (Version None)
Quarter: 2011Q4

REPORT INFORMATION
  Report Type: 
  Country: None (occurrence: None)
  Receive Date: 20111208
  Receipt Date: 20111208
  Transmission Date: 20120403
  Serious: Yes (Hospitalization, Other)
  Sender: FDA-Public Use
  Company Number: None

PATIENT
  Sex: Male
  Weight: 50 kg

DRUGS (1)
  1. HUMATROPE [Suspect]
     Indication: HYPOPITUITARISM
     Dosage: 0.3 MG DAILY SC
     Route: 058
     Dates: start: 20090701

REACTIONS (2)
  - BLOOD GLUCOSE ABNORMAL [None]
  - CEREBROVASCULAR ACCIDENT [None]
